FAERS Safety Report 13772242 (Version 1)
Quarter: 2017Q3

REPORT INFORMATION
  Report Type: Report from Study
  Country: CA (occurrence: CA)
  Receive Date: 20170720
  Receipt Date: 20170720
  Transmission Date: 20171127
  Serious: Yes (Other)
  Sender: FDA-Public Use
  Company Number: CA-JNJFOC-20170602097

PATIENT
  Age: 23 Year
  Sex: Female
  Weight: 55.9 kg

DRUGS (3)
  1. REMICADE [Suspect]
     Active Substance: INFLIXIMAB
     Indication: CROHN^S DISEASE
     Route: 042
     Dates: start: 20170622
  2. REMICADE [Suspect]
     Active Substance: INFLIXIMAB
     Indication: CROHN^S DISEASE
     Dosage: 18 MG
     Route: 042
     Dates: start: 20140409
  3. REMICADE [Suspect]
     Active Substance: INFLIXIMAB
     Indication: CROHN^S DISEASE
     Dosage: 30TH INFUSION
     Route: 042
     Dates: start: 20170602

REACTIONS (7)
  - Off label use [Unknown]
  - Infusion related reaction [Recovering/Resolving]
  - Lupus-like syndrome [Unknown]
  - Dizziness [Recovering/Resolving]
  - Product use issue [Unknown]
  - Chest discomfort [Recovering/Resolving]
  - Abdominal pain [Unknown]

NARRATIVE: CASE EVENT DATE: 20140409
